FAERS Safety Report 7037767 (Version 5)
Quarter: 2013Q1

REPORT INFORMATION
  Report Type: Report from Study
  Country: US (occurrence: US)
  Receive Date: 20090630
  Receipt Date: 20130219
  Transmission Date: 20140127
  Serious: Yes (Other)
  Sender: FDA-Public Use
  Company Number: US-RB-017103-09

PATIENT
  Age: 52 Year
  Sex: Female
  Weight: 69 kg

DRUGS (6)
  1. SUBOXONE [Suspect]
     Indication: DRUG DEPENDENCE
     Route: 060
     Dates: start: 200705, end: 2011
  2. SUBOXONE FILM [Suspect]
     Indication: DRUG DEPENDENCE
     Route: 060
     Dates: start: 2011
  3. LEXAPRO [Concomitant]
     Indication: DEPRESSION
     Route: 065
     Dates: end: 200905
  4. LEXAPRO [Concomitant]
     Indication: ANXIETY
     Dosage: DOSING INFORMATION NOT REPORTED
     Route: 048
  5. LEXAPRO [Concomitant]
     Indication: PANIC DISORDER
     Dosage: DOSING INFORMATION NOT REPORTED
     Route: 048
     Dates: end: 200905
  6. CLONAZEPAM [Concomitant]
     Indication: DEPRESSION
     Dosage: DOSAGE DETAILS NOT PROVIDED
     Route: 065

REACTIONS (12)
  - Suicidal ideation [Recovered/Resolved]
  - Asthenia [Not Recovered/Not Resolved]
  - Fatigue [Not Recovered/Not Resolved]
  - Pain [Recovered/Resolved]
  - Hyperhidrosis [Not Recovered/Not Resolved]
  - Chills [Not Recovered/Not Resolved]
  - Withdrawal syndrome [Not Recovered/Not Resolved]
  - Nephrolithiasis [Recovered/Resolved]
  - Yawning [Not Recovered/Not Resolved]
  - Depression [Recovered/Resolved]
  - Viral load increased [Not Recovered/Not Resolved]
  - Mania [Recovered/Resolved]
